FAERS Safety Report 4356437-2 (Version None)
Quarter: 2004Q2

REPORT INFORMATION
  Report Type: 
  Country: None (occurrence: None)
  Receive Date: 20040512
  Receipt Date: 20030925
  Transmission Date: 20050107
  Serious: No
  Sender: FDA-Public Use
  Company Number: US-GLAXOSMITHKLINE-A0427542A

PATIENT
  Age: 52 Year
  Sex: Female
  Weight: 53.6 kg

DRUGS (2)
  1. RELAFEN [Suspect]
     Dosage: 750MG PER DAY
     Route: 048
     Dates: start: 20030901
  2. PREMARIN [Concomitant]

REACTIONS (4)
  - ABDOMINAL PAIN UPPER [None]
  - HEADACHE [None]
  - NASAL CONGESTION [None]
  - RHINORRHOEA [None]
